FAERS Safety Report 5272562-6 (Version None)
Quarter: 2007Q1

REPORT INFORMATION
  Report Type: 
  Country: None (occurrence: None)
  Receive Date: 20070320
  Receipt Date: 20070320
  Transmission Date: 20070707
  Serious: No
  Sender: FDA-Public Use
  Company Number: None

PATIENT
  Age: 76 Year
  Sex: Male
  Weight: 107.9561 kg

DRUGS (2)
  1. PHENAZOPYRIDINE HCL TAB [Suspect]
     Indication: STOMATITIS
     Dosage: 1 PILL 3 TIMES A DAY PO
     Route: 048
     Dates: start: 20061208, end: 20061210
  2. PHENAZOPYRIDINE HCL TAB [Suspect]
     Indication: URTICARIA
     Dosage: 1 PILL 3 TIMES A DAY PO
     Route: 048
     Dates: start: 20061208, end: 20061210

REACTIONS (5)
  - AGEUSIA [None]
  - HYPERSENSITIVITY [None]
  - ORAL SOFT TISSUE DISORDER [None]
  - TONGUE DISORDER [None]
  - URTICARIA [None]
